FAERS Safety Report 21526022 (Version 2)
Quarter: 2023Q1

REPORT INFORMATION
  Report Type: Spontaneous
  Country: US (occurrence: US)
  Receive Date: 20221031
  Receipt Date: 20230105
  Transmission Date: 20230417
  Serious: No
  Sender: FDA-Public Use
  Company Number: US-BIOGEN-2022BI01165069

PATIENT
  Sex: Male

DRUGS (1)
  1. TYSABRI [Suspect]
     Active Substance: NATALIZUMAB
     Indication: Multiple sclerosis
     Route: 050
     Dates: start: 20211025

REACTIONS (6)
  - Drug ineffective [Not Recovered/Not Resolved]
  - Joint contracture [Not Recovered/Not Resolved]
  - Foot deformity [Unknown]
  - Head injury [Unknown]
  - Fall [Recovered/Resolved]
  - Muscle spasms [Not Recovered/Not Resolved]
